FAERS Safety Report 18225027 (Version 4)
Quarter: 2021Q2

REPORT INFORMATION
  Report Type: Report from Study
  Country: CA (occurrence: CA)
  Receive Date: 20200903
  Receipt Date: 20210429
  Transmission Date: 20210717
  Serious: Yes (Hospitalization, Other)
  Sender: FDA-Public Use
  Company Number: CA-AMGEN-CANSL2020013015

PATIENT
  Age: 72 Year
  Sex: Male

DRUGS (5)
  1. OMEGA 3 [FISH OIL] [Concomitant]
     Active Substance: FISH OIL
     Dosage: UNK
  2. CALCIUM [Concomitant]
     Active Substance: CALCIUM
     Dosage: UNK
  3. VITAMIN D [COLECALCIFEROL] [Concomitant]
     Active Substance: CHOLECALCIFEROL
     Dosage: UNK
     Route: 065
  4. PROLIA [Suspect]
     Active Substance: DENOSUMAB
     Indication: OSTEOPOROSIS
     Dosage: 60 MILLIGRAM PER MILLILITRE
     Route: 065
     Dates: start: 20150105
  5. CHOLESTEROL [Concomitant]
     Active Substance: CHOLESTEROL
     Dosage: UNK

REACTIONS (13)
  - Oral discomfort [Not Recovered/Not Resolved]
  - Alopecia [Not Recovered/Not Resolved]
  - Burning sensation [Not Recovered/Not Resolved]
  - Arthritis [Not Recovered/Not Resolved]
  - Medical device removal [Unknown]
  - Sinus perforation [Unknown]
  - Osteonecrosis of jaw [Unknown]
  - Eczema [Unknown]
  - Post procedural complication [Unknown]
  - Feeling hot [Not Recovered/Not Resolved]
  - Dental implantation [Not Recovered/Not Resolved]
  - Paraesthesia oral [Not Recovered/Not Resolved]
  - Salivary hypersecretion [Not Recovered/Not Resolved]

NARRATIVE: CASE EVENT DATE: 201710
